FAERS Safety Report 5089457-3 (Version None)
Quarter: 2006Q3

REPORT INFORMATION
  Report Type: 
  Country: None (occurrence: None)
  Receive Date: 20060822
  Receipt Date: 20060814
  Transmission Date: 20061208
  Serious: Yes (Hospitalization)
  Sender: FDA-Public Use
  Company Number: 2006-08-0316

PATIENT
  Age: 38 Year
  Sex: Male
  Weight: 95.2554 kg

DRUGS (8)
  1. PEG-INTRON [Suspect]
     Indication: HEPATITIS C
     Dosage: 0.5 ML QWK SUBCUTANEOUS
     Route: 058
     Dates: start: 20060427, end: 20060601
  2. RIBASPHERE [Suspect]
     Indication: HEPATITIS C
     Dosage: 1400MG QD ORAL
     Route: 048
     Dates: start: 20060427, end: 20060601
  3. CARAFRATE (SUCRALFATE) ORAL SUSPENSION [Concomitant]
  4. LASIX [Concomitant]
  5. NADOLOL [Concomitant]
  6. FOLIC ACID TAB [Concomitant]
  7. PREVACID ORALS [Concomitant]
  8. SPIRONOLACTONE [Concomitant]

REACTIONS (4)
  - CHOLELITHIASIS [None]
  - INCISION SITE COMPLICATION [None]
  - POSTOPERATIVE INFECTION [None]
  - WHITE BLOOD CELL COUNT DECREASED [None]
